FAERS Safety Report 4279645-8 (Version None)
Quarter: 2004Q1

REPORT INFORMATION
  Report Type: 
  Country: None (occurrence: None)
  Receive Date: 20040123
  Receipt Date: 20040108
  Transmission Date: 20041129
  Serious: Yes (Hospitalization)
  Sender: FDA-Public Use
  Company Number: S04-FRA-00132-01

PATIENT
  Age: 68 Year
  Sex: Female

DRUGS (4)
  1. SEROPRAM (CITALOPRAM HYDROBROMIDE) [Suspect]
     Indication: DEPRESSION
     Dosage: 20 MG QD PO
     Route: 048
     Dates: start: 20030724, end: 20030902
  2. RAMIPRIL [Suspect]
     Indication: AGE INDETERMINATE MYOCARDIAL INFARCTION
     Dosage: 2.5 MG QD PO
     Route: 048
     Dates: start: 20030724, end: 20030902
  3. RISPERDAL [Suspect]
     Indication: PSYCHOTIC DISORDER
     Dosage: 2 MG QD PO
     Route: 048
     Dates: start: 20030809, end: 20030902
  4. RISPERDAL [Suspect]
     Indication: SCHIZOPHRENIA
     Dosage: 2 MG QD PO
     Route: 048
     Dates: start: 20030809, end: 20030902

REACTIONS (9)
  - AGRANULOCYTOSIS [None]
  - BLOOD SODIUM DECREASED [None]
  - CHILLS [None]
  - GINGIVITIS [None]
  - HAEMOGLOBIN DECREASED [None]
  - HYPERTHERMIA [None]
  - HYPOTENSION [None]
  - OLIGURIA [None]
  - PLATELET COUNT INCREASED [None]
